FAERS Safety Report 5621608-1 (Version None)
Quarter: 2008Q1

REPORT INFORMATION
  Report Type: 
  Country: None (occurrence: None)
  Receive Date: 20080130
  Receipt Date: 20080124
  Transmission Date: 20080703
  Serious: Yes (Hospitalization)
  Sender: FDA-Public Use
  Company Number: WAES 0712CHEN00016

PATIENT
  Age: 65 Year
  Sex: Male

DRUGS (18)
  1. CAP VORINOSTAT [Suspect]
     Indication: MYCOSIS FUNGOIDES
     Dosage: 400 MG/DAILY, PO
     Route: 048
     Dates: start: 20070502, end: 20071023
  2. TAB BEXAROTENE [Suspect]
     Indication: MYCOSIS FUNGOIDES
     Dosage: 150 MG/DAILY/PO
     Route: 048
     Dates: start: 20070509, end: 20071023
  3. COZAAR [Concomitant]
  4. ACONITE (+) AQUILEGIA VULGARIS (+) BAEL [Concomitant]
  5. CITALOPRAM HYDROBROMIDE [Concomitant]
  6. DEXPANTHENOL (+) UREA (+) VITAMIN A PLAM [Concomitant]
  7. FENOFIBRATE [Concomitant]
  8. HYDROCORTISONE [Concomitant]
  9. HYDROXYZINE HYDROCHLORIDE [Concomitant]
  10. INSULIN DETEMIR [Concomitant]
  11. LEVOTHYROXINE SODIUM [Concomitant]
  12. MAGNESIUM (UNSPECIFIED) [Concomitant]
  13. MIRTAZAPINE [Concomitant]
  14. OXCARBAZEPINE [Concomitant]
  15. PRAVASTATIN SODIUM [Concomitant]
  16. TAMSULOSIN HCL [Concomitant]
  17. TRIAMCINOLONE [Concomitant]
  18. UREA [Concomitant]

REACTIONS (5)
  - BLOOD PRESSURE SYSTOLIC INCREASED [None]
  - DEPRESSED MOOD [None]
  - FALL [None]
  - GAIT DISTURBANCE [None]
  - POLYNEUROPATHY [None]
